FAERS Safety Report 11303728 (Version 1)
Quarter: 2015Q3

REPORT INFORMATION
  Report Type: Spontaneous
  Country: US (occurrence: US)
  Receive Date: 20150723
  Receipt Date: 20150723
  Transmission Date: 20151125
  Serious: No
  Sender: FDA-Public Use
  Company Number: US-JNJFOC-20150100741

PATIENT
  Sex: Female
  Weight: 91.63 kg

DRUGS (10)
  1. ISOSORBIDE. [Concomitant]
     Active Substance: ISOSORBIDE
     Indication: BLOOD PRESSURE MEASUREMENT
  2. ZYRTEC [Suspect]
     Active Substance: CETIRIZINE HYDROCHLORIDE
     Indication: NASAL CONGESTION
     Dosage: 1 TABLET THEN 1/2 TABLET
     Route: 048
     Dates: start: 20141227, end: 20141228
  3. LYRICA [Concomitant]
     Active Substance: PREGABALIN
     Indication: PAIN
  4. WARFARIN [Concomitant]
     Active Substance: WARFARIN
     Indication: THROMBOSIS
  5. DIGOXIN. [Concomitant]
     Active Substance: DIGOXIN
     Indication: CARDIAC DISORDER
  6. METOPROLOL [Concomitant]
     Active Substance: METOPROLOL
     Indication: BLOOD PRESSURE MEASUREMENT
  7. ZYRTEC [Suspect]
     Active Substance: CETIRIZINE HYDROCHLORIDE
     Route: 048
  8. VALSARTAN. [Concomitant]
     Active Substance: VALSARTAN
     Indication: CARDIAC DISORDER
  9. VITAMIN D [Concomitant]
     Active Substance: CHOLECALCIFEROL
     Indication: BONE DISORDER
  10. GLIPIZIDE ER [Concomitant]
     Active Substance: GLIPIZIDE
     Indication: DIABETES MELLITUS

REACTIONS (3)
  - Fatigue [Recovered/Resolved]
  - Somnolence [Unknown]
  - Wrong technique in product usage process [Unknown]
